FAERS Safety Report 9472249 (Version 1)
Quarter: 2013Q3

REPORT INFORMATION
  Report Type: Spontaneous
  Country: US (occurrence: US)
  Receive Date: 20130823
  Receipt Date: 20130823
  Transmission Date: 20140515
  Serious: Yes (Disabling)
  Sender: FDA-Public Use
  Company Number: US-GENZYME-CERZ-1003137

PATIENT
  Sex: Male

DRUGS (1)
  1. CEREZYME [Suspect]
     Indication: GAUCHER^S DISEASE
     Dosage: 4000 U, Q2W
     Route: 042
     Dates: start: 20020813

REACTIONS (1)
  - Parkinson^s disease [Not Recovered/Not Resolved]
